FAERS Safety Report 9402904 (Version 1)
Quarter: 2013Q3

REPORT INFORMATION
  Report Type: Spontaneous
  Country: IT (occurrence: IT)
  Receive Date: 20130716
  Receipt Date: 20130716
  Transmission Date: 20140515
  Serious: Yes (Other)
  Sender: FDA-Public Use
  Company Number: IT-TEVA-418394ISR

PATIENT
  Age: 47 Year
  Sex: Female

DRUGS (5)
  1. CARBIPLATINO TEVA [Suspect]
     Indication: OVARIAN CANCER
     Route: 042
     Dates: start: 20130305, end: 20130305
  2. PACLITAXEL TEVA [Suspect]
     Indication: OVARIAN CANCER
     Route: 042
     Dates: start: 20130305, end: 20130305
  3. ONDANSETRONE HIKMA [Concomitant]
     Dosage: 8 MILLIGRAM DAILY;
     Route: 042
     Dates: start: 20130305, end: 20130305
  4. SOLDESAM [Concomitant]
     Dosage: 8 MILLIGRAM DAILY;
     Route: 042
     Dates: start: 20130305, end: 20130305
  5. RANIDIL [Concomitant]
     Dosage: 50 MILLIGRAM DAILY;
     Dates: start: 20130305, end: 20130305

REACTIONS (5)
  - Fatigue [Unknown]
  - Formication [Unknown]
  - Migraine [Unknown]
  - Skin discolouration [Unknown]
  - Pain [Unknown]
